FAERS Safety Report 16651741 (Version 1)
Quarter: 2019Q3

REPORT INFORMATION
  Report Type: Spontaneous
  Country: US (occurrence: US)
  Receive Date: 20190617
  Receipt Date: 20190617
  Transmission Date: 20191004
  Serious: Yes (Other)
  Sender: FDA-Public Use
  Company Number: None

PATIENT
  Age: 39 Year
  Sex: Female

DRUGS (1)
  1. METHYLPREDNISOLONE 4MG [Suspect]
     Active Substance: METHYLPREDNISOLONE
     Indication: JOINT SWELLING
     Route: 048
     Dates: start: 20190606

REACTIONS (3)
  - Dyspnoea [None]
  - Heart rate increased [None]
  - Paraesthesia [None]

NARRATIVE: CASE EVENT DATE: 20190606
